FAERS Safety Report 16313048 (Version 1)
Quarter: 2019Q2

REPORT INFORMATION
  Report Type: Spontaneous
  Country: US (occurrence: US)
  Receive Date: 20190515
  Receipt Date: 20190515
  Transmission Date: 20190711
  Serious: No
  Sender: FDA-Public Use
  Company Number: US-B.I. PHARMACEUTICALS,INC./RIDGEFIELD-2019-BI-021157

PATIENT

DRUGS (3)
  1. NEURONTIN [Concomitant]
     Active Substance: GABAPENTIN
     Indication: PRODUCT USED FOR UNKNOWN INDICATION
     Route: 065
  2. MOBIC [Suspect]
     Active Substance: MELOXICAM
     Indication: PRODUCT USED FOR UNKNOWN INDICATION
     Route: 065
  3. XOPENEX HFA [Suspect]
     Active Substance: LEVALBUTEROL TARTRATE
     Indication: PRODUCT USED FOR UNKNOWN INDICATION
     Route: 065

REACTIONS (8)
  - Dyspnoea [Unknown]
  - Back pain [Unknown]
  - Micturition disorder [Unknown]
  - Chest discomfort [Unknown]
  - Vision blurred [Unknown]
  - Thirst [Unknown]
  - Diarrhoea [Unknown]
  - Chest pain [Unknown]

NARRATIVE: CASE EVENT DATE: 20190204
